FAERS Safety Report 14801221 (Version 26)
Quarter: 2023Q1

REPORT INFORMATION
  Report Type: Spontaneous
  Country: CA (occurrence: CA)
  Receive Date: 20180424
  Receipt Date: 20230121
  Transmission Date: 20230417
  Serious: Yes (Hospitalization, Other)
  Sender: FDA-Public Use
  Company Number: CA-CELLTRION INC.-2018CA019333

PATIENT

DRUGS (35)
  1. INFLECTRA [Suspect]
     Active Substance: INFLIXIMAB-DYYB
     Indication: Colitis ulcerative
     Dosage: 300 MG, 0, 2, 6 THEN EVERY 8 WEEKS
     Route: 042
     Dates: start: 20180404, end: 20180710
  2. INFLECTRA [Suspect]
     Active Substance: INFLIXIMAB-DYYB
     Dosage: 300 MG, 0, 2, 6 THEN EVERY 8 WEEKS
     Route: 042
     Dates: start: 20180515
  3. INFLECTRA [Suspect]
     Active Substance: INFLIXIMAB-DYYB
     Dosage: 300 MG, 0, 2, 6 THEN EVERY 8 WEEKS
     Route: 042
     Dates: start: 20180710
  4. INFLECTRA [Suspect]
     Active Substance: INFLIXIMAB-DYYB
     Dosage: 300 MG, EVERY 6 WEEKS
     Route: 042
     Dates: start: 20180824
  5. INFLECTRA [Suspect]
     Active Substance: INFLIXIMAB-DYYB
     Dosage: 300 MG, EVERY 6 WEEKS
     Route: 042
     Dates: start: 20181221
  6. INFLECTRA [Suspect]
     Active Substance: INFLIXIMAB-DYYB
     Dosage: 300 MG, EVERY 6 WEEKS
     Route: 042
     Dates: start: 20191017
  7. INFLECTRA [Suspect]
     Active Substance: INFLIXIMAB-DYYB
     Dosage: 300 MG, EVERY 6 WEEKS
     Route: 042
     Dates: start: 20191126
  8. INFLECTRA [Suspect]
     Active Substance: INFLIXIMAB-DYYB
     Dosage: 300 MG, EVERY 6 WEEKS
     Route: 042
     Dates: start: 20200107
  9. INFLECTRA [Suspect]
     Active Substance: INFLIXIMAB-DYYB
     Dosage: 300 MG, EVERY 6 WEEKS
     Route: 042
     Dates: start: 20200514
  10. INFLECTRA [Suspect]
     Active Substance: INFLIXIMAB-DYYB
     Dosage: 300 MG, EVERY 6 WEEKS
     Route: 042
     Dates: start: 20200623
  11. INFLECTRA [Suspect]
     Active Substance: INFLIXIMAB-DYYB
     Dosage: 300 MG, EVERY 6 WEEKS
     Route: 042
     Dates: start: 20200804
  12. INFLECTRA [Suspect]
     Active Substance: INFLIXIMAB-DYYB
     Dosage: 300 MG, EVERY 6 WEEKS
     Route: 042
     Dates: start: 20200915
  13. INFLECTRA [Suspect]
     Active Substance: INFLIXIMAB-DYYB
     Dosage: 300 MG, EVERY 6 WEEKS
     Route: 042
     Dates: start: 20201030
  14. INFLECTRA [Suspect]
     Active Substance: INFLIXIMAB-DYYB
     Dosage: 300 MG, EVERY 6 WEEKS
     Route: 042
     Dates: start: 20201211
  15. INFLECTRA [Suspect]
     Active Substance: INFLIXIMAB-DYYB
     Dosage: 300 MG, EVERY 6 WEEKS
     Route: 042
     Dates: start: 20210302
  16. INFLECTRA [Suspect]
     Active Substance: INFLIXIMAB-DYYB
     Dosage: 300 MG, EVERY 6 WEEKS
     Route: 042
     Dates: start: 20210412
  17. INFLECTRA [Suspect]
     Active Substance: INFLIXIMAB-DYYB
     Dosage: 300 MG, EVERY 6 WEEKS
     Route: 042
     Dates: start: 20210525
  18. INFLECTRA [Suspect]
     Active Substance: INFLIXIMAB-DYYB
     Dosage: 300 MG, EVERY 6 WEEKS
     Route: 042
     Dates: start: 20210816
  19. INFLECTRA [Suspect]
     Active Substance: INFLIXIMAB-DYYB
     Dosage: 300 MG, EVERY 6 WEEKS
     Route: 042
     Dates: start: 20210929
  20. INFLECTRA [Suspect]
     Active Substance: INFLIXIMAB-DYYB
     Dosage: 300 MG, EVERY 6 WEEKS
     Route: 042
     Dates: start: 20220429
  21. INFLECTRA [Suspect]
     Active Substance: INFLIXIMAB-DYYB
     Dosage: 300 MG, EVERY 6 WEEKS
     Route: 042
     Dates: start: 20220608
  22. INFLECTRA [Suspect]
     Active Substance: INFLIXIMAB-DYYB
     Dosage: 300 MG, EVERY 6 WEEKS
     Route: 042
     Dates: start: 20220725
  23. INFLECTRA [Suspect]
     Active Substance: INFLIXIMAB-DYYB
     Dosage: 300 MG, EVERY 6 WEEKS
     Route: 042
     Dates: start: 20221201
  24. INFLECTRA [Suspect]
     Active Substance: INFLIXIMAB-DYYB
     Dosage: 300 MG, EVERY 6 WEEKS
     Route: 042
     Dates: start: 20230111
  25. EZETIMIBE [Concomitant]
     Active Substance: EZETIMIBE
     Dosage: 10 MG, 1X/DAY
     Route: 048
     Dates: start: 2003
  26. METHOTREXATE [Concomitant]
     Active Substance: METHOTREXATE
     Dosage: 10 MG, WEEKLY
     Route: 048
     Dates: start: 20180726
  27. MESALAMINE [Concomitant]
     Active Substance: MESALAMINE
     Dosage: 2 DF (TABLETS), 2X/DAY
     Route: 048
     Dates: start: 2015
  28. MESALAMINE [Concomitant]
     Active Substance: MESALAMINE
     Dosage: 4.8 G, 1X/DAY
     Route: 048
  29. MESALAMINE [Concomitant]
     Active Substance: MESALAMINE
     Dosage: 1 DF, 2X/DAY, 1.2G
     Route: 048
     Dates: start: 2015
  30. PREDNISONE [Concomitant]
     Active Substance: PREDNISONE
     Dosage: 40 MG, 1X/DAY
     Route: 048
     Dates: start: 2015
  31. PREDNISONE [Concomitant]
     Active Substance: PREDNISONE
     Dosage: 40 MG, 1X/DAY
     Route: 048
     Dates: start: 201803
  32. PREDNISONE [Concomitant]
     Active Substance: PREDNISONE
     Dosage: 10 MG, 1X/DAY
     Route: 048
  33. PRED FORTE [Concomitant]
     Active Substance: PREDNISOLONE ACETATE
     Indication: Iritis
     Dosage: EVERY 2 HOURS DROP
     Dates: start: 20180714
  34. SIMVASTATIN [Concomitant]
     Active Substance: SIMVASTATIN
     Dosage: 10 MG, 1X/DAY
     Route: 048
     Dates: start: 2003
  35. SYNTHROID [Concomitant]
     Active Substance: LEVOTHYROXINE SODIUM
     Dosage: 25 UG, 1X/DAY
     Route: 048
     Dates: start: 2016

REACTIONS (20)
  - Condition aggravated [Recovered/Resolved]
  - Hypotension [Recovered/Resolved]
  - Chest pain [Unknown]
  - Cataract [Unknown]
  - Prostate cancer [Not Recovered/Not Resolved]
  - Off label use [Unknown]
  - Drug level decreased [Unknown]
  - Ocular discomfort [Unknown]
  - Headache [Unknown]
  - Iritis [Recovering/Resolving]
  - Drug level below therapeutic [Unknown]
  - Malaise [Unknown]
  - Dizziness [Unknown]
  - Peripheral swelling [Recovered/Resolved]
  - Heart rate decreased [Unknown]
  - Discomfort [Unknown]
  - Muscle strain [Unknown]
  - COVID-19 [Unknown]
  - Poor venous access [Not Recovered/Not Resolved]
  - Condition aggravated [Recovered/Resolved]

NARRATIVE: CASE EVENT DATE: 20180101
